FAERS Safety Report 4697942-9 (Version None)
Quarter: 2005Q2

REPORT INFORMATION
  Report Type: 
  Country: None (occurrence: None)
  Receive Date: 20050623
  Receipt Date: 20050616
  Transmission Date: 20051028
  Serious: Yes (Other)
  Sender: FDA-Public Use
  Company Number: GB-BOEHRINGER INGELHEIM PHARMACEUTICALS, INC.-2005-UK-01088UK

PATIENT
  Age: 27 Year
  Sex: Female
  Weight: 60 kg

DRUGS (2)
  1. NEVIRAPINE [Suspect]
  2. NEVIRAPINE [Suspect]

REACTIONS (8)
  - ALANINE AMINOTRANSFERASE INCREASED [None]
  - ASPARTATE AMINOTRANSFERASE INCREASED [None]
  - CD4 LYMPHOCYTES INCREASED [None]
  - EPIGLOTTITIS [None]
  - HEPATITIS [None]
  - ORAL MUCOSAL ERUPTION [None]
  - RASH [None]
  - STEVENS-JOHNSON SYNDROME [None]
